FAERS Safety Report 7359367-7 (Version None)
Quarter: 2011Q1

REPORT INFORMATION
  Report Type: 
  Country: None (occurrence: None)
  Receive Date: 20110317
  Receipt Date: 20110314
  Transmission Date: 20110831
  Serious: Yes (Other)
  Sender: FDA-Public Use
  Company Number: US-CTI_01331_2011

PATIENT
  Sex: Female

DRUGS (5)
  1. FACTIVE [Suspect]
     Indication: BRONCHITIS CHRONIC
     Dosage: DF
     Route: 048
     Dates: start: 20100101
  2. FACTIVE [Suspect]
     Indication: PNEUMONIA
     Dosage: DF
     Route: 048
     Dates: start: 20110228, end: 20110302
  3. FACTIVE [Suspect]
     Indication: COUGH
     Route: 048
     Dates: start: 20110228, end: 20110302
  4. STEROIDS (UNSPECIFIED) [Suspect]
     Indication: DYSPNOEA
     Dosage: DF
  5. STEROIDS (UNSPECIFIED) [Suspect]
     Indication: COUGH
     Dosage: DF

REACTIONS (2)
  - DYSPNOEA [None]
  - DRUG ADMINISTRATION ERROR [None]
